FAERS Safety Report 7618317-6 (Version None)
Quarter: 2011Q3

REPORT INFORMATION
  Report Type: 
  Country: None (occurrence: None)
  Receive Date: 20110718
  Receipt Date: 20110706
  Transmission Date: 20111222
  Serious: Yes (Hospitalization)
  Sender: FDA-Public Use
  Company Number: FR-ROCHE-788569

PATIENT
  Sex: Female

DRUGS (7)
  1. DESLORATADINE [Concomitant]
  2. BISOPROLOL FUMARATE [Concomitant]
     Dates: start: 20000101
  3. ATORVASTATIN CALCIUM [Concomitant]
     Indication: HYPERLIPIDAEMIA
     Route: 048
     Dates: start: 20030101
  4. TRIMEBUTINE [Concomitant]
     Dosage: WHEN NEEDED
  5. ACTEMRA [Suspect]
     Indication: RHEUMATOID ARTHRITIS
     Dosage: FORM: INFUSION
     Route: 042
     Dates: start: 20090520
  6. ACTEMRA [Suspect]
     Dosage: FREQUENCY REPORTED AS: CYCLE
     Route: 042
     Dates: start: 20100203, end: 20100323
  7. TIMOFEROL [Concomitant]

REACTIONS (1)
  - GENERALISED OEDEMA [None]
